FAERS Safety Report 13779137 (Version 2)
Quarter: 2017Q3

REPORT INFORMATION
  Report Type: Spontaneous
  Country: US (occurrence: US)
  Receive Date: 20170721
  Receipt Date: 20170810
  Transmission Date: 20171127
  Serious: No
  Sender: FDA-Public Use
  Company Number: US-PFIZER INC-2017311654

PATIENT
  Age: 46 Year
  Sex: Female
  Weight: 63.5 kg

DRUGS (31)
  1. PROGESTERONE. [Concomitant]
     Active Substance: PROGESTERONE
     Indication: HORMONE REPLACEMENT THERAPY
     Dosage: 100 MG, 1X/DAY(100 MG, ONCE A DAY AT BED TIME)
  2. VERAPAMIL [Concomitant]
     Active Substance: VERAPAMIL HYDROCHLORIDE
     Indication: TRICUSPID VALVE PROLAPSE
  3. BIOTIN WITH KERATIN [Concomitant]
     Indication: SKIN DISORDER
  4. SUPER B COMPLEX [Concomitant]
     Active Substance: CYANOCOBALAMIN\DEXPANTHENOL\NIACINAMIDE\PYRIDOXINE HYDROCHLORIDE\RIBOFLAVIN 5^-PHOSPHATE SODIUM\THIAMINE HYDROCHLORIDE\VITAMIN B COMPLEX
     Indication: NAIL DISORDER
  5. BUSPAR [Concomitant]
     Active Substance: BUSPIRONE HYDROCHLORIDE
     Indication: ANXIETY
     Dosage: 30 MG, 2X/DAY
  6. RANITIDINE. [Concomitant]
     Active Substance: RANITIDINE
     Indication: GASTROOESOPHAGEAL REFLUX DISEASE
     Dosage: 300 MG, 2X/DAY
  7. BIOTIN WITH KERATIN [Concomitant]
     Indication: ONYCHOCLASIS
  8. RITALIN [Concomitant]
     Active Substance: METHYLPHENIDATE HYDROCHLORIDE
     Indication: ATTENTION DEFICIT/HYPERACTIVITY DISORDER
     Dosage: 10 MG, 1X/DAY
  9. VERAPAMIL [Concomitant]
     Active Substance: VERAPAMIL HYDROCHLORIDE
     Indication: RAYNAUD^S PHENOMENON
     Dosage: 180 AT BED TIME
  10. GABAPENTIN. [Concomitant]
     Active Substance: GABAPENTIN
     Indication: NEURALGIA
     Dosage: 400, FOUR TIMES A DAY
  11. DICHLORALPHENAZONE/ISOMETHEPTENE/PARACETAMOL [Concomitant]
     Indication: MIGRAINE
     Dosage: ONE CAPSULE FOUR TIME A DAY AS NEEDED
  12. RANITIDINE. [Concomitant]
     Active Substance: RANITIDINE
     Indication: DYSPEPSIA
  13. DICHLORALPHENAZONE/ISOMETHEPTENE/PARACETAMOL [Concomitant]
     Indication: HEADACHE
  14. MEGARED JOINT CARE [Concomitant]
     Indication: ARTHROPATHY
  15. OPANA [Suspect]
     Active Substance: OXYMORPHONE HYDROCHLORIDE
     Dosage: UNK
  16. VERAPAMIL [Concomitant]
     Active Substance: VERAPAMIL HYDROCHLORIDE
     Indication: MITRAL VALVE PROLAPSE
  17. OCUVITE [Concomitant]
     Active Substance: VITAMINS
     Indication: MACULAR DEGENERATION
     Dosage: ONE A DAY
  18. OCUVITE [Concomitant]
     Active Substance: VITAMINS
     Indication: RETINAL DRUSEN
  19. DICHLORALPHENAZONE/ISOMETHEPTENE/PARACETAMOL [Concomitant]
     Indication: TENSION HEADACHE
  20. SUPER B COMPLEX [Concomitant]
     Active Substance: CYANOCOBALAMIN\DEXPANTHENOL\NIACINAMIDE\PYRIDOXINE HYDROCHLORIDE\RIBOFLAVIN 5^-PHOSPHATE SODIUM\THIAMINE HYDROCHLORIDE\VITAMIN B COMPLEX
     Indication: HAIR DISORDER
     Dosage: SUPER B COMPLEX WITH 1000 MG OF BIOTIN ONCE A DAY
  21. EMBEDA [Suspect]
     Active Substance: MORPHINE SULFATE\NALTREXONE HYDROCHLORIDE
     Indication: PAIN MANAGEMENT
     Dosage: [MORPHINE SULFATE 50 MG]/[NALTREXONE HYDROCHLORIDE 2 MG]
     Route: 048
     Dates: start: 20170715
  22. OXYCODONE [Concomitant]
     Active Substance: OXYCODONE
     Indication: PAIN
     Dosage: 10 MG, 4X/DAY
  23. ACYCLOVIR. [Concomitant]
     Active Substance: ACYCLOVIR
     Indication: PROPHYLAXIS
     Dosage: 800 MG, 1X/DAY
  24. VITAMIN D3 [Concomitant]
     Active Substance: CHOLECALCIFEROL
     Indication: VITAMIN D DECREASED
     Dosage: 5000 IU, 1X/DAY
  25. BACLOFEN. [Concomitant]
     Active Substance: BACLOFEN
     Indication: MUSCLE SPASMS
     Dosage: 20 MG, 3X/DAY
  26. ESTRADIOL. [Concomitant]
     Active Substance: ESTRADIOL
     Indication: HORMONE REPLACEMENT THERAPY
     Dosage: 0.5 MG, 1X/DAY(0.5 MG, ONE TABLET AT BED TIME)
  27. LUTEIN/ZEAXANTHING [Concomitant]
     Indication: VITAMIN SUPPLEMENTATION
     Dosage: 25/5
  28. MEGARED JOINT CARE [Concomitant]
     Indication: CARDIAC DISORDER
     Dosage: 500 MG, 1X/DAY
  29. BIOTIN WITH KERATIN [Concomitant]
     Indication: TRICHORRHEXIS
     Dosage: [BIOTIN 10000 MCG]/[KERATIN 100 MG] ONCE A DAY
  30. PRENATAL VITAMINS [Concomitant]
     Active Substance: VITAMINS
     Indication: MALNUTRITION
     Dosage: 1 DF, 1X/DAY
  31. SENNOSIDES. [Concomitant]
     Active Substance: SENNOSIDES
     Dosage: 8.6 MG, FOUR TABLETS AT BED TIME DAILY EVERY NIGHT

REACTIONS (6)
  - Muscle spasms [Unknown]
  - Drug withdrawal headache [Recovering/Resolving]
  - Asthenia [Unknown]
  - Abdominal discomfort [Unknown]
  - Dizziness [Unknown]
  - Feeling abnormal [Unknown]
